FAERS Safety Report 7764327-8 (Version None)
Quarter: 2011Q3

REPORT INFORMATION
  Report Type: 
  Country: None (occurrence: None)
  Receive Date: 20110921
  Receipt Date: 20110912
  Transmission Date: 20111222
  Serious: Yes (Other)
  Sender: FDA-Public Use
  Company Number: IN-BRISTOL-MYERS SQUIBB COMPANY-16073314

PATIENT
  Age: 40 Year
  Sex: Female

DRUGS (5)
  1. BUSULFAN [Suspect]
     Indication: CHRONIC MYELOID LEUKAEMIA
  2. MESNA [Suspect]
     Indication: CHRONIC MYELOID LEUKAEMIA
  3. METHOTREXATE [Suspect]
     Indication: CHRONIC MYELOID LEUKAEMIA
  4. CYCLOPHOSPHAMIDE [Suspect]
     Indication: CHRONIC MYELOID LEUKAEMIA
  5. CYTARABINE [Suspect]
     Indication: CHRONIC MYELOID LEUKAEMIA

REACTIONS (1)
  - CYSTITIS HAEMORRHAGIC [None]
